FAERS Safety Report 8105526-5 (Version None)
Quarter: 2012Q1

REPORT INFORMATION
  Report Type: 
  Country: None (occurrence: None)
  Receive Date: 20120201
  Receipt Date: 20120130
  Transmission Date: 20120608
  Serious: Yes (Other)
  Sender: FDA-Public Use
  Company Number: SE-BAYER-2012-009007

PATIENT
  Age: 48 Year
  Sex: Female

DRUGS (6)
  1. VALPROIC ACID [Concomitant]
  2. IMOVAN [Concomitant]
  3. LYRICA [Concomitant]
     Indication: FIBROMYALGIA
  4. CLOTRIMAZOLE [Suspect]
     Indication: FUNGAL INFECTION
     Dosage: 500 MG, UNK
     Dates: start: 20120127
  5. FLUANXOL [Concomitant]
  6. PROPAVAN [Concomitant]

REACTIONS (3)
  - VAGINAL HAEMORRHAGE [None]
  - VULVOVAGINAL DISCOMFORT [None]
  - VAGINAL DISCHARGE [None]
